FAERS Safety Report 14038302 (Version 2)
Quarter: 2017Q4

REPORT INFORMATION
  Report Type: Spontaneous
  Country: JP (occurrence: JP)
  Receive Date: 20171004
  Receipt Date: 20171024
  Transmission Date: 20180321
  Serious: Yes (Hospitalization, Other)
  Sender: FDA-Public Use
  Company Number: JP-BAYER-2017-181259

PATIENT
  Age: 75 Year
  Sex: Male

DRUGS (2)
  1. XOFIGO [Suspect]
     Active Substance: RADIUM RA-223 DICHLORIDE
     Indication: PROSTATE CANCER STAGE IV
     Dosage: 55KBQ/KG, Q1MON
     Route: 042
     Dates: start: 20170718, end: 20170815
  2. XOFIGO [Suspect]
     Active Substance: RADIUM RA-223 DICHLORIDE
     Indication: METASTASES TO BONE

REACTIONS (3)
  - Cardiac failure [Recovered/Resolved]
  - Pleural effusion [Recovering/Resolving]
  - Malaise [None]

NARRATIVE: CASE EVENT DATE: 20170822
